FAERS Safety Report 9418166 (Version 1)
Quarter: 2013Q3

REPORT INFORMATION
  Report Type: Spontaneous
  Country: CH (occurrence: CH)
  Receive Date: 20130724
  Receipt Date: 20130724
  Transmission Date: 20140515
  Serious: Yes (Life-Threatening, Hospitalization)
  Sender: FDA-Public Use
  Company Number: CH-BAXTER-2013BAX027977

PATIENT
  Age: 64 Year
  Sex: Female
  Weight: 75 kg

DRUGS (10)
  1. ENDOXAN 1 G [Suspect]
     Indication: PLASMA CELL MYELOMA
     Route: 065
     Dates: start: 20111027, end: 20120203
  2. VINORELBINE TARTRATE [Suspect]
     Indication: PLASMA CELL MYELOMA
     Route: 065
     Dates: start: 20120215, end: 20120215
  3. REVLIMID [Suspect]
     Indication: PLASMA CELL MYELOMA
     Route: 048
     Dates: start: 201207
  4. REVLIMID [Suspect]
     Route: 048
  5. VELCADE [Suspect]
     Indication: PLASMA CELL MYELOMA
     Route: 065
     Dates: start: 20111027, end: 20120203
  6. ALKERAN [Suspect]
     Indication: PLASMA CELL MYELOMA
     Route: 065
     Dates: start: 20120301
  7. DEXAMETHASONE [Concomitant]
     Indication: PLASMA CELL MYELOMA
     Route: 048
     Dates: start: 20111027, end: 20130203
  8. ZOMETA [Concomitant]
     Indication: PLASMA CELL MYELOMA
     Route: 048
     Dates: start: 20130215, end: 20130215
  9. ZOMETA [Concomitant]
     Route: 048
     Dates: start: 20110930
  10. NEUPOGEN [Concomitant]
     Indication: PLASMA CELL MYELOMA
     Route: 041
     Dates: start: 20130215

REACTIONS (1)
  - Endocrine neoplasm [Unknown]
